FAERS Safety Report 13266429 (Version 1)
Quarter: 2017Q1

REPORT INFORMATION
  Report Type: Spontaneous
  Country: US (occurrence: US)
  Receive Date: 20170223
  Receipt Date: 20170223
  Transmission Date: 20170428
  Serious: Yes (Hospitalization)
  Sender: FDA-Public Use
  Company Number: US-VIFOR (INTERNATIONAL) INC.-VIT-2017-01652

PATIENT
  Sex: Male

DRUGS (8)
  1. CALCITRIOL. [Concomitant]
     Active Substance: CALCITRIOL
  2. RENA-VITE [Concomitant]
     Active Substance: ASCORBIC ACID\BIOTIN\CALCIUM PANTOTHENATE\CYANOCOBALAMIN\FOLIC ACID\NIACINAMIDE\PYRIDOXINE HYDROCHLORIDE\RIBOFLAVIN\THIAMINE MONONITRATE
  3. SIMVASTATIN. [Concomitant]
     Active Substance: SIMVASTATIN
  4. SODIUM BICARBONATE. [Concomitant]
     Active Substance: SODIUM BICARBONATE
  5. VELTASSA [Suspect]
     Active Substance: PATIROMER
     Indication: HYPERKALAEMIA
     Route: 048
     Dates: start: 20161229
  6. NEURONTIN [Concomitant]
     Active Substance: GABAPENTIN
  7. PHOSLO [Concomitant]
     Active Substance: CALCIUM ACETATE
  8. ACETYLSALICYLIC ACID [Concomitant]
     Active Substance: ASPIRIN

REACTIONS (1)
  - Cardiac disorder [Unknown]
